FAERS Safety Report 10186063 (Version 1)
Quarter: 2014Q2

REPORT INFORMATION
  Report Type: Spontaneous
  Country: CN (occurrence: CN)
  Receive Date: 20140521
  Receipt Date: 20140521
  Transmission Date: 20141212
  Serious: Yes (Other)
  Sender: FDA-Public Use
  Company Number: CN-PFIZER INC-2014135423

PATIENT
  Age: 69 Year
  Sex: Male
  Weight: 75 kg

DRUGS (3)
  1. TAZOCIN [Suspect]
     Indication: ANTI-INFECTIVE THERAPY
     Dosage: 4.5 G, 3X/DAY
     Route: 041
     Dates: start: 20130217, end: 20130223
  2. ORNIDAZOLE [Suspect]
     Indication: ANTI-INFECTIVE THERAPY
     Dosage: 500 MG, 2X/DAY
     Route: 041
     Dates: start: 20130205, end: 20130217
  3. CEFTRIAXONE SODIUM [Suspect]
     Indication: ANTI-INFECTIVE THERAPY
     Dosage: 2 G, 1X/DAY
     Route: 041
     Dates: start: 20130205, end: 20130217

REACTIONS (2)
  - Fungal oesophagitis [Recovering/Resolving]
  - Oral fungal infection [Recovering/Resolving]
